FAERS Safety Report 20823956 (Version 4)
Quarter: 2023Q2

REPORT INFORMATION
  Report Type: Spontaneous
  Country: US (occurrence: US)
  Receive Date: 20220513
  Receipt Date: 20230608
  Transmission Date: 20230722
  Serious: Yes (Hospitalization, Other)
  Sender: FDA-Public Use
  Company Number: US-BRISTOL-MYERS SQUIBB COMPANY-2022-022572

PATIENT
  Age: 79 Year
  Sex: Female
  Weight: 66.22 kg

DRUGS (2)
  1. REVLIMID [Suspect]
     Active Substance: LENALIDOMIDE
     Indication: Myelodysplastic syndrome
     Route: 048
     Dates: start: 20211201
  2. REVLIMID [Suspect]
     Active Substance: LENALIDOMIDE
     Indication: Plasma cell myeloma

REACTIONS (5)
  - Chromaturia [Not Recovered/Not Resolved]
  - Memory impairment [Not Recovered/Not Resolved]
  - Neoplasm malignant [Unknown]
  - Fibula fracture [Unknown]
  - Urinary tract infection [Unknown]
